FAERS Safety Report 6505095-7 (Version None)
Quarter: 2009Q4

REPORT INFORMATION
  Report Type: 
  Country: None (occurrence: None)
  Receive Date: 20091218
  Receipt Date: 20090916
  Transmission Date: 20100525
  Serious: Yes (Death, Other)
  Sender: FDA-Public Use
  Company Number: US-BAYER-200932923GPV

PATIENT
  Age: 31 Year
  Sex: Female
  Weight: 86 kg

DRUGS (2)
  1. SOTALOL HCL [Suspect]
     Indication: ATRIAL TACHYCARDIA
     Dosage: AS USED: 160 MG
     Route: 048
  2. LOW ESTROGEN BIRTH CONTROL PILL [Suspect]
     Indication: CONTRACEPTION
     Dosage: LOW DOSE

REACTIONS (2)
  - COUGH [None]
  - PULMONARY EMBOLISM [None]
